FAERS Safety Report 15404004 (Version 1)
Quarter: 2018Q3

REPORT INFORMATION
  Report Type: Spontaneous
  Country: US (occurrence: US)
  Receive Date: 20180919
  Receipt Date: 20180919
  Transmission Date: 20181010
  Serious: No
  Sender: FDA-Public Use
  Company Number: US-AVADEL SPECIALTY PHARMACEUTICALS, LLC-2018AVA00126

PATIENT
  Age: 70 Year
  Sex: Female
  Weight: 95.24 kg

DRUGS (1)
  1. NOCTIVA [Suspect]
     Active Substance: DESMOPRESSIN ACETATE
     Dosage: 3.32 ?G (1 SPRAY IN EACH NOSTRIL), 1X/DAY AT NIGHT BEFORE BED
     Route: 045
     Dates: start: 20180628, end: 201807

REACTIONS (7)
  - Initial insomnia [Recovered/Resolved]
  - Incorrect dose administered [Recovered/Resolved]
  - Oropharyngeal pain [Not Recovered/Not Resolved]
  - Restless legs syndrome [Recovered/Resolved]
  - Nasal discomfort [Not Recovered/Not Resolved]
  - Product preparation error [Recovered/Resolved]
  - Nasal dryness [Not Recovered/Not Resolved]

NARRATIVE: CASE EVENT DATE: 201806
